FAERS Safety Report 12365450 (Version 1)
Quarter: 2016Q2

REPORT INFORMATION
  Report Type: Spontaneous
  Country: US (occurrence: US)
  Receive Date: 20160513
  Receipt Date: 20160513
  Transmission Date: 20160815
  Serious: No
  Sender: FDA-Public Use
  Company Number: US-GLAXOSMITHKLINE-US2016063964

PATIENT

DRUGS (1)
  1. EXCEDRIN MIGRAINE [Suspect]
     Active Substance: ACETAMINOPHEN\ASPIRIN\CAFFEINE
     Indication: MIGRAINE
     Dosage: 4 CAPLETS IN 12 HOURS
     Dates: start: 20160503, end: 20160503

REACTIONS (3)
  - Extra dose administered [Unknown]
  - Expired product administered [Unknown]
  - Incorrect dose administered [Unknown]
